FAERS Safety Report 8707579 (Version 2)
Quarter: 2013Q4

REPORT INFORMATION
  Report Type: Spontaneous
  Country: US (occurrence: US)
  Receive Date: 20120805
  Receipt Date: 20131031
  Transmission Date: 20140711
  Serious: No
  Sender: FDA-Public Use
  Company Number: US-009507513-2012SP035566

PATIENT
  Age: 33 Year
  Sex: Male
  Weight: 65.76 kg

DRUGS (4)
  1. CLARITIN-D-24 [Suspect]
     Indication: HYPERSENSITIVITY
     Dosage: 10 MG, QD
     Route: 048
     Dates: start: 20120506, end: 20120510
  2. CLARITIN-D-24 [Suspect]
     Indication: LABYRINTHITIS
  3. CLARITIN-D-24 [Suspect]
     Indication: MEDICAL OBSERVATION
  4. VITAMIN D (UNSPECIFIED) [Concomitant]
     Indication: VITAMIN D DEFICIENCY
     Dosage: UNK, UNKNOWN

REACTIONS (2)
  - Somnolence [Recovered/Resolved]
  - No therapeutic response [Unknown]
